FAERS Safety Report 10244104 (Version 1)
Quarter: 2014Q2

REPORT INFORMATION
  Report Type: Spontaneous
  Country: BR (occurrence: BR)
  Receive Date: 20140618
  Receipt Date: 20140618
  Transmission Date: 20141212
  Serious: Yes (Other)
  Sender: FDA-Public Use
  Company Number: PHHY2014BR074783

PATIENT
  Age: 12 Year
  Sex: Male

DRUGS (3)
  1. TOFRANIL [Suspect]
     Dosage: UNK UKN, UNK
  2. RITALIN LA [Suspect]
     Dosage: UNK UKN, UNK
  3. DEPAKOTE - SLOW RELEASE [Suspect]
     Dosage: UNK UKN, UNK

REACTIONS (3)
  - Bipolar disorder [Unknown]
  - Insomnia [Unknown]
  - Agitation [Unknown]
